FAERS Safety Report 15759762 (Version 1)
Quarter: 2018Q4

REPORT INFORMATION
  Report Type: Spontaneous
  Country: US (occurrence: US)
  Receive Date: 20181226
  Receipt Date: 20181226
  Transmission Date: 20190205
  Serious: No
  Sender: FDA-Public Use
  Company Number: US-SUN PHARMACEUTICAL INDUSTRIES LTD-2018US-177456

PATIENT
  Sex: Female

DRUGS (1)
  1. ACETAMINOPHEN. [Suspect]
     Active Substance: ACETAMINOPHEN
     Indication: ARTHRALGIA
     Dosage: PILLS IN MORNING, 3 IN AFTERNOON, 4 AT NIGHT
     Route: 065
     Dates: start: 2018

REACTIONS (2)
  - Overdose [Unknown]
  - Weight increased [Unknown]

NARRATIVE: CASE EVENT DATE: 2018
